FAERS Safety Report 12111364 (Version 1)
Quarter: 2016Q1

REPORT INFORMATION
  Report Type: Spontaneous
  Country: None (occurrence: US)
  Receive Date: 20160224
  Receipt Date: 20160224
  Transmission Date: 20160526
  Serious: No
  Sender: FDA-Public Use
  Company Number: US-MEDAC PHARMA, INC.-1048355

PATIENT
  Age: 66 Year
  Sex: Male

DRUGS (1)
  1. RASUVO [Suspect]
     Active Substance: METHOTREXATE SODIUM
     Indication: RHEUMATOID ARTHRITIS
     Route: 058
     Dates: start: 201505, end: 20160126

REACTIONS (3)
  - Pruritus [Not Recovered/Not Resolved]
  - Excoriation [Not Recovered/Not Resolved]
  - Rash erythematous [Not Recovered/Not Resolved]
